FAERS Safety Report 20653466 (Version 1)
Quarter: 2022Q1

REPORT INFORMATION
  Report Type: Spontaneous
  Country: US (occurrence: US)
  Receive Date: 20220330
  Receipt Date: 20220330
  Transmission Date: 20220424
  Serious: Yes (Other)
  Sender: FDA-Public Use
  Company Number: US-APOTEX-2022AP005274

PATIENT
  Age: 75 Year
  Sex: Female

DRUGS (4)
  1. GEMCITABINE [Interacting]
     Active Substance: GEMCITABINE
     Indication: Malignant peritoneal neoplasm
     Dosage: UNK
     Route: 065
  2. CARBOPLATIN [Interacting]
     Active Substance: CARBOPLATIN
     Indication: Malignant peritoneal neoplasm
     Dosage: UNK
     Route: 065
  3. OLAPARIB [Interacting]
     Active Substance: OLAPARIB
     Indication: Malignant peritoneal neoplasm
     Dosage: UNK
     Route: 065
  4. PACLITAXEL [Interacting]
     Active Substance: PACLITAXEL
     Indication: Malignant peritoneal neoplasm
     Dosage: UNK
     Route: 065

REACTIONS (2)
  - Acute erythroid leukaemia [Unknown]
  - Drug interaction [Unknown]
